FAERS Safety Report 7714098-6 (Version None)
Quarter: 2011Q3

REPORT INFORMATION
  Report Type: 
  Country: None (occurrence: None)
  Receive Date: 20110828
  Receipt Date: 20110818
  Transmission Date: 20111222
  Serious: Yes (Hospitalization)
  Sender: FDA-Public Use
  Company Number: BR-US-EMD SERONO, INC.-7078075

PATIENT
  Sex: Female

DRUGS (3)
  1. REBIF [Suspect]
     Indication: RELAPSING-REMITTING MULTIPLE SCLEROSIS
     Dates: start: 20100210
  2. LORESAL [Concomitant]
  3. FLUOXETINE [Concomitant]

REACTIONS (4)
  - INJECTION SITE ERYTHEMA [None]
  - ABDOMINOPLASTY [None]
  - MUSCLE SPASMS [None]
  - INJECTION SITE PAIN [None]
